FAERS Safety Report 9575313 (Version 2)
Quarter: 2013Q4

REPORT INFORMATION
  Report Type: Spontaneous
  Country: CO (occurrence: CO)
  Receive Date: 20131001
  Receipt Date: 20131024
  Transmission Date: 20140711
  Serious: Yes (Other)
  Sender: FDA-Public Use
  Company Number: CO-PFIZER INC-2013279651

PATIENT
  Age: 4 Year
  Sex: Male
  Weight: 12 kg

DRUGS (3)
  1. GENOTROPIN [Suspect]
     Indication: GROWTH HORMONE DEFICIENCY
     Dosage: 0.4 MG, 1X/DAY
     Route: 058
     Dates: start: 20130912
  2. CHLORPHENIRAMINE [Concomitant]
     Indication: INFLUENZA
     Dosage: 3.5 ML, EACH 8 HOURS DURING 10 DAYS
     Route: 048
     Dates: start: 20130917
  3. CHLORPHENIRAMINE [Concomitant]
     Indication: COUGH

REACTIONS (4)
  - Ear infection [Recovered/Resolved]
  - Influenza [Recovered/Resolved]
  - Cough [Recovered/Resolved]
  - Rhinorrhoea [Recovered/Resolved]
